FAERS Safety Report 7749791-2 (Version None)
Quarter: 2011Q3

REPORT INFORMATION
  Report Type: 
  Country: None (occurrence: None)
  Receive Date: 20110908
  Receipt Date: 20110824
  Transmission Date: 20111222
  Serious: Yes (Other)
  Sender: FDA-Public Use
  Company Number: 2011US005804

PATIENT
  Age: 40 Year
  Sex: Female

DRUGS (8)
  1. ALOXI [Suspect]
     Indication: PROPHYLAXIS OF NAUSEA AND VOMITING
     Dosage: INTRAVENOUS
     Route: 042
  2. DEXAMETHASONE [Suspect]
     Indication: PROPHYLAXIS OF NAUSEA AND VOMITING
     Dosage: INTRAVENOUS
     Route: 042
  3. HYDROCODONE W/PARACETAMOL (HYDROCODONE, PARACETAMOL) [Concomitant]
  4. CARBOPLATIN [Suspect]
     Indication: OVARIAN CANCER STAGE III
  5. APREPITANT [Suspect]
     Indication: PROPHYLAXIS OF NAUSEA AND VOMITING
     Dosage: ORAL
     Route: 048
  6. DIPHENHYDRAMINE HCL [Suspect]
     Indication: PROPHYLAXIS OF NAUSEA AND VOMITING
     Dosage: INTRAVENOUS
     Route: 042
  7. ESTRADIOL [Concomitant]
  8. PACLITAXEL [Suspect]
     Indication: OVARIAN CANCER STAGE III

REACTIONS (8)
  - HYPOTENSION [None]
  - DIZZINESS [None]
  - MALAISE [None]
  - ASTHENIA [None]
  - URTICARIA [None]
  - ANAPHYLACTIC REACTION [None]
  - RASH [None]
  - DYSPNOEA [None]
